FAERS Safety Report 13875465 (Version 1)
Quarter: 2017Q3

REPORT INFORMATION
  Report Type: Spontaneous
  Country: DE (occurrence: DE)
  Receive Date: 20170817
  Receipt Date: 20170817
  Transmission Date: 20171127
  Serious: Yes (Hospitalization, Disabling)
  Sender: FDA-Public Use
  Company Number: DE-ROCHE-1883012

PATIENT
  Age: 51 Year
  Sex: Female
  Weight: 79.6 kg

DRUGS (1)
  1. DIAZEPAM. [Suspect]
     Active Substance: DIAZEPAM
     Indication: CLAUSTROPHOBIA
     Route: 042

REACTIONS (4)
  - Nausea [Unknown]
  - Incorrect route of drug administration [Unknown]
  - Vomiting [Unknown]
  - Gangrene [Unknown]
